FAERS Safety Report 4551143-3 (Version None)
Quarter: 2005Q1

REPORT INFORMATION
  Report Type: 
  Country: None (occurrence: None)
  Receive Date: 20050113
  Receipt Date: 20050104
  Transmission Date: 20050727
  Serious: Yes (Other)
  Sender: FDA-Public Use
  Company Number: US-JNJFOC-20041007855

PATIENT
  Sex: Male
  Weight: 79.38 kg

DRUGS (18)
  1. REMICADE [Suspect]
     Dosage: 3 INFLIXIMAB TREATMENTS IN THE SUMMER OF 2003
     Route: 042
  2. ASACOL [Concomitant]
     Dosage: 2 TABLETS
  3. AZATHIOPRINE [Concomitant]
  4. MULTI-VITAMIN [Concomitant]
  5. MULTI-VITAMIN [Concomitant]
  6. MULTI-VITAMIN [Concomitant]
  7. MULTI-VITAMIN [Concomitant]
  8. MULTI-VITAMIN [Concomitant]
  9. MULTI-VITAMIN [Concomitant]
  10. MULTI-VITAMIN [Concomitant]
  11. MULTI-VITAMIN [Concomitant]
  12. VITAMIN B COMPLEX CAP [Concomitant]
  13. VITAMIN B COMPLEX CAP [Concomitant]
  14. VITAMIN B COMPLEX CAP [Concomitant]
  15. VITAMIN B COMPLEX CAP [Concomitant]
  16. LOMOTIL [Concomitant]
  17. LOMOTIL [Concomitant]
  18. CIPRO [Concomitant]

REACTIONS (2)
  - DIARRHOEA [None]
  - PERITONEAL ABSCESS [None]
